FAERS Safety Report 7281509-2 (Version None)
Quarter: 2011Q1

REPORT INFORMATION
  Report Type: 
  Country: None (occurrence: None)
  Receive Date: 20110208
  Receipt Date: 20110203
  Transmission Date: 20110831
  Serious: Yes (Other)
  Sender: FDA-Public Use
  Company Number: AT-PFIZER INC-2011025447

PATIENT
  Age: 27 Year
  Sex: Female

DRUGS (1)
  1. ZELDOX [Suspect]
     Indication: SCHIZOPHRENIA

REACTIONS (1)
  - WEIGHT INCREASED [None]
